FAERS Safety Report 8510474 (Version 2)
Quarter: 2013Q1

REPORT INFORMATION
  Report Type: Spontaneous
  Country: US (occurrence: US)
  Receive Date: 20120413
  Receipt Date: 20130321
  Transmission Date: 20140127
  Serious: No
  Sender: FDA-Public Use
  Company Number: US-PFIZER INC-2012088054

PATIENT
  Age: 61 Year
  Sex: 0

DRUGS (16)
  1. LEVOXYL [Suspect]
     Dosage: UNK
  2. ARTHROTEC [Suspect]
     Dosage: UNK
  3. CELEBREX [Suspect]
     Dosage: UNK
  4. ZOLOFT [Suspect]
     Dosage: UNK
  5. CODEINE [Suspect]
     Dosage: UNK
  6. PERCODAN [Suspect]
     Dosage: UNK
  7. DEMEROL [Suspect]
     Dosage: UNK
  8. TALWIN [Suspect]
     Dosage: UNK
  9. VICODIN [Suspect]
     Dosage: UNK
  10. LODINE [Suspect]
     Dosage: UNK
  11. ORUDIS [Suspect]
     Dosage: UNK
  12. BENZOIN [Suspect]
     Dosage: UNK
  13. SYNVISC [Suspect]
     Dosage: UNK
  14. CAPSAICIN [Suspect]
     Dosage: UNK
  15. DARVON [Suspect]
     Dosage: UNK
  16. DARVOCET [Suspect]
     Dosage: UNK

REACTIONS (5)
  - Rash [Unknown]
  - Rash erythematous [Unknown]
  - Arthritis [Unknown]
  - Arthralgia [Unknown]
  - Drug hypersensitivity [Unknown]
